FAERS Safety Report 7638429-0 (Version None)
Quarter: 2011Q3

REPORT INFORMATION
  Report Type: 
  Country: None (occurrence: None)
  Receive Date: 20110727
  Receipt Date: 20110727
  Transmission Date: 20111222
  Serious: Yes (Disabling)
  Sender: FDA-Public Use
  Company Number: None

PATIENT
  Sex: Male

DRUGS (14)
  1. PRADAXA [Suspect]
     Indication: ATRIAL FIBRILLATION
     Dosage: 150MG
     Route: 048
     Dates: start: 20110401, end: 20110501
  2. TRAMADOL HCL [Concomitant]
     Route: 048
  3. METOPROLOL TARTRATE [Concomitant]
     Route: 048
  4. JANUMET 50-500MG, [Concomitant]
     Route: 048
  5. HYDROCODONE/APAP 10-325MG, [Concomitant]
     Route: 048
  6. LANTUS [Concomitant]
     Route: 058
  7. RAMIPRIL [Concomitant]
     Route: 048
  8. KLOR-CON [Concomitant]
     Route: 048
  9. MULTAG [Concomitant]
     Route: 048
  10. GABAPENTIN [Concomitant]
     Route: 048
  11. LIPITOR [Concomitant]
     Route: 048
  12. LANOXIN [Concomitant]
     Route: 048
  13. SERTRALINE HYDROCHLORIDE [Concomitant]
     Route: 048
  14. SKELAXIN [Concomitant]
     Route: 048

REACTIONS (1)
  - RASH [None]
